FAERS Safety Report 25744330 (Version 1)
Quarter: 2025Q3

REPORT INFORMATION
  Report Type: Report from Study
  Country: CA (occurrence: CA)
  Receive Date: 20250901
  Receipt Date: 20250901
  Transmission Date: 20251021
  Serious: Yes (Hospitalization, Other)
  Sender: TAKEDA
  Company Number: CA-TAKEDA-2025TUS053956

PATIENT
  Age: 70 Year
  Sex: Female

DRUGS (4)
  1. VEDOLIZUMAB [Suspect]
     Active Substance: VEDOLIZUMAB
     Indication: Crohn^s disease
  2. VEDOLIZUMAB [Suspect]
     Active Substance: VEDOLIZUMAB
  3. VEDOLIZUMAB [Suspect]
     Active Substance: VEDOLIZUMAB
  4. Cortiment [Concomitant]
     Dosage: 6 MILLIGRAM, QD

REACTIONS (8)
  - Arrhythmia [Unknown]
  - Chest pain [Recovered/Resolved]
  - Peripheral swelling [Unknown]
  - Arthralgia [Unknown]
  - Pain in extremity [Unknown]
  - Anaemia [Unknown]
  - Gastrooesophageal reflux disease [Unknown]
  - Lung disorder [Unknown]

NARRATIVE: CASE EVENT DATE: 20250809
